FAERS Safety Report 6005618-0 (Version None)
Quarter: 2008Q4

REPORT INFORMATION
  Report Type: 
  Country: None (occurrence: None)
  Receive Date: 20081216
  Receipt Date: 20081216
  Transmission Date: 20090506
  Serious: Yes (Other)
  Sender: FDA-Public Use
  Company Number: None

PATIENT
  Sex: Female

DRUGS (1)
  1. DROPERIDOL [Suspect]
     Dosage: 2.5MG IM
     Route: 030

REACTIONS (3)
  - ANXIETY [None]
  - FEELING ABNORMAL [None]
  - TEARFULNESS [None]
